FAERS Safety Report 8298270-5 (Version None)
Quarter: 2012Q2

REPORT INFORMATION
  Report Type: 
  Country: None (occurrence: None)
  Receive Date: 20120419
  Receipt Date: 20120314
  Transmission Date: 20120825
  Serious: No
  Sender: FDA-Public Use
  Company Number: US-BRISTOL-MYERS SQUIBB COMPANY-16369886

PATIENT
  Age: 71 Year
  Sex: Male

DRUGS (1)
  1. YERVOY [Suspect]
     Indication: METASTATIC OCULAR MELANOMA
     Dosage: 2ND DOSE: 06-JAN-2012.
     Route: 042
     Dates: start: 20111216

REACTIONS (8)
  - MALAISE [None]
  - PYREXIA [None]
  - PAIN [None]
  - ORCHITIS [None]
  - HYPERSOMNIA [None]
  - DECREASED APPETITE [None]
  - NEPHRITIS [None]
  - ARTHRALGIA [None]
